FAERS Safety Report 4428721-5 (Version None)
Quarter: 2004Q3

REPORT INFORMATION
  Report Type: 
  Country: None (occurrence: None)
  Receive Date: 20040818
  Receipt Date: 20040209
  Transmission Date: 20050211
  Serious: No
  Sender: FDA-Public Use
  Company Number: US-BRISTOL-MYERS SQUIBB COMPANY-12500476

PATIENT
  Sex: Female

DRUGS (1)
  1. TEQUIN [Suspect]
     Dates: start: 20040207

REACTIONS (2)
  - BACK PAIN [None]
  - HEADACHE [None]
